FAERS Safety Report 10761508 (Version 1)
Quarter: 2015Q1

REPORT INFORMATION
  Report Type: Spontaneous
  Country: US (occurrence: None)
  Receive Date: 20150203
  Receipt Date: 20150203
  Transmission Date: 20150721
  Serious: No
  Sender: FDA-Public Use
  Company Number: None

PATIENT
  Age: 83 Year
  Sex: Male
  Weight: 90.9 kg

DRUGS (1)
  1. BRIMONIDINE/BINZOLAMIDE [Suspect]
     Active Substance: BRIMONIDINE TARTRATE\BRINZOLAMIDE
     Indication: GLAUCOMA
     Dosage: 1 DROPS EYE
     Dates: start: 20141203, end: 20141212

REACTIONS (3)
  - Dyspnoea [None]
  - Hypertensive crisis [None]
  - Dizziness [None]

NARRATIVE: CASE EVENT DATE: 20141212
